FAERS Safety Report 6086501-1 (Version None)
Quarter: 2009Q1

REPORT INFORMATION
  Report Type: 
  Country: None (occurrence: None)
  Receive Date: 20090223
  Receipt Date: 20090213
  Transmission Date: 20090719
  Serious: Yes (Other)
  Sender: FDA-Public Use
  Company Number: US-JNJFOC-20090203898

PATIENT
  Sex: Male

DRUGS (1)
  1. INVEGA [Suspect]
     Indication: BIPOLAR DISORDER
     Route: 048

REACTIONS (1)
  - ELECTROCARDIOGRAM QT PROLONGED [None]
